FAERS Safety Report 7438015-1 (Version None)
Quarter: 2011Q2

REPORT INFORMATION
  Report Type: 
  Country: None (occurrence: None)
  Receive Date: 20110426
  Receipt Date: 20100901
  Transmission Date: 20111010
  Serious: No
  Sender: FDA-Public Use
  Company Number: US-MYLANLABS-2010S1014638

PATIENT
  Age: 79 Year
  Sex: Female

DRUGS (12)
  1. LOVAZA [Concomitant]
  2. NITROFURANTOIN (MONOHYDRATE/MACROCRYSTALS) [Suspect]
     Indication: PROPHYLAXIS URINARY TRACT INFECTION
     Dates: start: 20100629, end: 20100712
  3. CLONIDINE [Concomitant]
  4. FUROSEMIDE [Concomitant]
  5. DIOVAN [Concomitant]
  6. HUMALOG [Concomitant]
     Indication: DIABETES MELLITUS
     Dosage: SLIDING SCALE
  7. LEVOTHYROXINE SODIUM [Concomitant]
  8. ASPIRIN [Concomitant]
  9. LANTUS [Interacting]
     Indication: INSULIN-REQUIRING TYPE 2 DIABETES MELLITUS
     Dates: start: 20080701
  10. CALCIUM + VITAMIN D [Concomitant]
  11. MULTIVITAMIN AND MINERAL [Concomitant]
  12. KLOR-CON [Concomitant]

REACTIONS (4)
  - DRUG INTERACTION [None]
  - GAIT DISTURBANCE [None]
  - MUSCULAR WEAKNESS [None]
  - BLOOD GLUCOSE INCREASED [None]
